FAERS Safety Report 4359765-X (Version None)
Quarter: 2004Q2

REPORT INFORMATION
  Report Type: 
  Country: None (occurrence: None)
  Receive Date: 20040518
  Receipt Date: 20040504
  Transmission Date: 20050107
  Serious: Yes (Other)
  Sender: FDA-Public Use
  Company Number: NSADSS2002026314

PATIENT
  Sex: Female
  Weight: 58.97 kg

DRUGS (9)
  1. ORTHO TRI-CYCLEN [Suspect]
     Indication: DRUG USE FOR UNKNOWN INDICATION
     Route: 049
  2. PRENATAL VITAMINS [Concomitant]
     Route: 065
  3. PRENATAL VITAMINS [Concomitant]
     Route: 065
  4. PRENATAL VITAMINS [Concomitant]
     Route: 065
  5. PRENATAL VITAMINS [Concomitant]
     Route: 065
  6. PRENATAL VITAMINS [Concomitant]
     Route: 065
  7. PRENATAL VITAMINS [Concomitant]
     Route: 065
  8. PRENATAL VITAMINS [Concomitant]
     Route: 065
  9. PRENATAL VITAMINS [Concomitant]
     Route: 065

REACTIONS (7)
  - DRUG EXPOSURE DURING PREGNANCY [None]
  - GESTATIONAL DIABETES [None]
  - PREGNANCY ON ORAL CONTRACEPTIVE [None]
  - PREMATURE BABY [None]
  - PREMATURE LABOUR [None]
  - UNINTENDED PREGNANCY [None]
  - URINARY TRACT INFECTION [None]
